FAERS Safety Report 17966126 (Version 2)
Quarter: 2020Q3

REPORT INFORMATION
  Report Type: Spontaneous
  Country: DE (occurrence: DE)
  Receive Date: 20200701
  Receipt Date: 20200828
  Transmission Date: 20201103
  Serious: Yes (Hospitalization)
  Sender: FDA-Public Use
  Company Number: DE-BIOGEN-2020BI00891474

PATIENT
  Age: 49 Year
  Sex: Female
  Weight: 56 kg

DRUGS (1)
  1. TECFIDERA [Suspect]
     Active Substance: DIMETHYL FUMARATE
     Indication: MULTIPLE SCLEROSIS
     Route: 048
     Dates: start: 20140310

REACTIONS (3)
  - Thoracic vertebral fracture [Recovered/Resolved with Sequelae]
  - Lumbar vertebral fracture [Recovered/Resolved with Sequelae]
  - Spinal compression fracture [Unknown]

NARRATIVE: CASE EVENT DATE: 202006
